FAERS Safety Report 5494652-5 (Version None)
Quarter: 2007Q4

REPORT INFORMATION
  Report Type: 
  Country: None (occurrence: None)
  Receive Date: 20071023
  Receipt Date: 20071023
  Transmission Date: 20080405
  Serious: Yes (Disabling)
  Sender: FDA-Public Use
  Company Number: None

PATIENT
  Age: 57 Year
  Sex: Male
  Weight: 70.3075 kg

DRUGS (2)
  1. CIALIS [Suspect]
     Indication: ERECTILE DYSFUNCTION
     Dosage: ONCE A WEEK
     Dates: start: 20070315, end: 20070415
  2. VIAGA [Suspect]
     Indication: ERECTILE DYSFUNCTION
     Dosage: ONCE A WEEK
     Dates: start: 20070819, end: 20070822

REACTIONS (3)
  - DEAFNESS TRANSITORY [None]
  - SUDDEN HEARING LOSS [None]
  - TINNITUS [None]
